FAERS Safety Report 16577078 (Version 1)
Quarter: 2019Q3

REPORT INFORMATION
  Report Type: Spontaneous
  Country: US (occurrence: US)
  Receive Date: 20190716
  Receipt Date: 20190716
  Transmission Date: 20191004
  Serious: Yes (Hospitalization, Other)
  Sender: FDA-Public Use
  Company Number: US-GLAXOSMITHKLINE-US2019GSK125377

PATIENT
  Age: 74 Year
  Sex: Male

DRUGS (6)
  1. METFORMIN [Concomitant]
     Active Substance: METFORMIN HYDROCHLORIDE
     Indication: PRODUCT USED FOR UNKNOWN INDICATION
     Dosage: UNK
  2. ASPIRIN LOW DOSE [Concomitant]
     Active Substance: ASPIRIN
     Indication: PRODUCT USED FOR UNKNOWN INDICATION
     Dosage: UNK
  3. FLUTICASONE FUROATE + VILANTEROL TRIFENATATE [Suspect]
     Active Substance: FLUTICASONE FUROATE\VILANTEROL TRIFENATATE
     Indication: CHRONIC OBSTRUCTIVE PULMONARY DISEASE
     Dosage: UNK
     Route: 055
  4. ALBUTEROL SULFATE. [Concomitant]
     Active Substance: ALBUTEROL SULFATE
     Indication: CHRONIC OBSTRUCTIVE PULMONARY DISEASE
     Dosage: UNK
  5. VITAMIN D SUPPLEMENT [Concomitant]
     Active Substance: VITAMIN D NOS
     Indication: PRODUCT USED FOR UNKNOWN INDICATION
     Dosage: UNK
  6. FORMOTEROL + GLYCOPYRROLATE [Concomitant]
     Indication: CHRONIC OBSTRUCTIVE PULMONARY DISEASE
     Dosage: UNK

REACTIONS (23)
  - Dyspnoea [Unknown]
  - Rash [Unknown]
  - Vomiting [Unknown]
  - Drug-induced liver injury [Recovered/Resolved]
  - Dyspnoea exertional [Unknown]
  - Decreased appetite [Unknown]
  - Diarrhoea [Unknown]
  - Metabolic acidosis [Unknown]
  - Cholelithiasis [Unknown]
  - Jaundice [Unknown]
  - Blood creatinine increased [Unknown]
  - Renal cyst [Unknown]
  - Weight decreased [Unknown]
  - Hepatocellular injury [Unknown]
  - Nausea [Unknown]
  - Asthenia [Recovered/Resolved]
  - Pruritus [Recovered/Resolved]
  - General physical health deterioration [Unknown]
  - Lethargy [Recovered/Resolved]
  - Acute kidney injury [Unknown]
  - Hepatomegaly [Unknown]
  - Bilirubinuria [Unknown]
  - Pancreas divisum [Unknown]
